FAERS Safety Report 8161090-6 (Version None)
Quarter: 2012Q1

REPORT INFORMATION
  Report Type: 
  Country: None (occurrence: None)
  Receive Date: 20120224
  Receipt Date: 20120221
  Transmission Date: 20120608
  Serious: No
  Sender: FDA-Public Use
  Company Number: US-PFIZER INC-2012046073

PATIENT
  Sex: Male
  Weight: 87.075 kg

DRUGS (4)
  1. VIAGRA [Suspect]
     Dosage: 50 MG, AS NEEDED
     Route: 048
     Dates: start: 20120101
  2. LOPID [Concomitant]
     Indication: BLOOD TRIGLYCERIDES INCREASED
     Dosage: UNK
  3. VIAGRA [Suspect]
     Indication: ERECTILE DYSFUNCTION
     Dosage: 25 MG, AS NEEDED
     Route: 048
     Dates: start: 20120101, end: 20120101
  4. METFORMIN [Concomitant]
     Dosage: UNK, 1X/DAY
     Route: 048

REACTIONS (4)
  - SPONTANEOUS PENILE ERECTION [None]
  - ERECTILE DYSFUNCTION [None]
  - HEADACHE [None]
  - BLOOD TRIGLYCERIDES INCREASED [None]
